FAERS Safety Report 4385017-8 (Version None)
Quarter: 2004Q2

REPORT INFORMATION
  Report Type: 
  Country: None (occurrence: None)
  Receive Date: 20040625
  Receipt Date: 20040618
  Transmission Date: 20050107
  Serious: Yes (Death)
  Sender: FDA-Public Use
  Company Number: US-GLAXOSMITHKLINE-A0515239A

PATIENT
  Age: 44 Year
  Sex: Male

DRUGS (8)
  1. WELLBUTRIN [Suspect]
     Dosage: 150MG TWICE PER DAY
     Route: 048
     Dates: start: 20030801
  2. TEGRETOL [Suspect]
     Indication: CONVULSION PROPHYLAXIS
  3. LIBRIUM [Suspect]
  4. NORTRIPTYLINE HCL [Concomitant]
  5. DEPAKOTE [Concomitant]
  6. SEROQUEL [Concomitant]
  7. TRAZODONE HCL [Concomitant]
  8. CELEXA [Concomitant]

REACTIONS (2)
  - PULMONARY THROMBOSIS [None]
  - ROAD TRAFFIC ACCIDENT [None]
